FAERS Safety Report 23523835 (Version 1)
Quarter: 2024Q1

REPORT INFORMATION
  Report Type: Spontaneous
  Country: JP (occurrence: JP)
  Receive Date: 20240214
  Receipt Date: 20240214
  Transmission Date: 20240410
  Serious: Yes (Other)
  Sender: FDA-Public Use
  Company Number: JP-HEXAL-SDZ2023JP003919AA

PATIENT
  Age: 67 Year
  Sex: Male

DRUGS (1)
  1. VALSARTAN [Suspect]
     Active Substance: VALSARTAN
     Indication: Product used for unknown indication
     Dosage: UNK
     Route: 048

REACTIONS (6)
  - Cryoglobulinaemia [Unknown]
  - Hepatitis B [Unknown]
  - Illusion [Unknown]
  - Hypoaesthesia [Unknown]
  - Livedo reticularis [Unknown]
  - Purpura [Unknown]
